FAERS Safety Report 21712828 (Version 1)
Quarter: 2022Q4

REPORT INFORMATION
  Report Type: Spontaneous
  Country: US (occurrence: US)
  Receive Date: 20221212
  Receipt Date: 20221212
  Transmission Date: 20230112
  Serious: Yes (Hospitalization)
  Sender: FDA-Public Use
  Company Number: US-SA-SAC20221208001233

PATIENT
  Sex: Female

DRUGS (2)
  1. AUBAGIO [Suspect]
     Active Substance: TERIFLUNOMIDE
     Indication: Multiple sclerosis
     Dosage: 14 MG, QD
     Route: 048
  2. HYOSCYAMINE SULFATE [Concomitant]
     Active Substance: HYOSCYAMINE SULFATE
     Indication: Abdominal discomfort

REACTIONS (7)
  - Myalgia [Unknown]
  - Balance disorder [Unknown]
  - Gait disturbance [Unknown]
  - Fall [Unknown]
  - Sleep disorder [Unknown]
  - Memory impairment [Unknown]
  - Vision blurred [Unknown]
